FAERS Safety Report 20883909 (Version 2)
Quarter: 2022Q2

REPORT INFORMATION
  Report Type: Spontaneous
  Country: US (occurrence: US)
  Receive Date: 20220527
  Receipt Date: 20220620
  Transmission Date: 20220721
  Serious: No
  Sender: FDA-Public Use
  Company Number: US-PFIZER INC-202200751414

PATIENT
  Sex: Female

DRUGS (2)
  1. PAXLOVID [Suspect]
     Active Substance: NIRMATRELVIR\RITONAVIR
     Indication: COVID-19 treatment
     Dosage: UNK
  2. ROSUVASTATIN [Suspect]
     Active Substance: ROSUVASTATIN
     Indication: Blood cholesterol abnormal
     Dosage: UNK

REACTIONS (1)
  - No adverse event [Unknown]
